FAERS Safety Report 9100000 (Version 1)
Quarter: 2013Q1

REPORT INFORMATION
  Report Type: Spontaneous
  Country: IT (occurrence: IT)
  Receive Date: 20130215
  Receipt Date: 20130215
  Transmission Date: 20140127
  Serious: Yes (Other)
  Sender: FDA-Public Use
  Company Number: IT-BAXTER-2013BAX003772

PATIENT
  Age: 79 Year
  Sex: Male

DRUGS (7)
  1. GLUCOSIO 5% BAXTER [Suspect]
     Indication: MEDICATION DILUTION
     Route: 042
     Dates: start: 20130110, end: 20130124
  2. OXALIPLATIN [Suspect]
     Indication: GASTRIC CANCER
     Route: 042
     Dates: start: 20130110, end: 20130124
  3. BLOPRESS [Concomitant]
     Indication: HYPERTENSION
     Route: 048
  4. ZOFRAN [Concomitant]
     Indication: PROPHYLAXIS
     Route: 065
     Dates: start: 20130110, end: 20130124
  5. SOLDESAM [Concomitant]
     Indication: PRODUCT USED FOR UNKNOWN INDICATION
     Route: 065
  6. FLUOROURACIL W/OXALIPLATIN [Concomitant]
     Indication: PRODUCT USED FOR UNKNOWN INDICATION
     Route: 065
     Dates: end: 20101228
  7. FOLIC ACID [Concomitant]
     Indication: PRODUCT USED FOR UNKNOWN INDICATION
     Route: 065
     Dates: end: 20101228

REACTIONS (1)
  - Erythema [Recovered/Resolved]
